FAERS Safety Report 8732284 (Version 3)
Quarter: 2014Q1

REPORT INFORMATION
  Report Type: Spontaneous
  Country: US (occurrence: US)
  Receive Date: 20120820
  Receipt Date: 20140220
  Transmission Date: 20141002
  Serious: Yes (Other)
  Sender: FDA-Public Use
  Company Number: US-ASTRAZENECA-2012SE56875

PATIENT
  Age: 86 Year
  Sex: Female
  Weight: 78 kg

DRUGS (21)
  1. NEXIUM [Suspect]
     Indication: HIATUS HERNIA
     Dosage: SINCE 2010 OR 2011
     Route: 048
  2. NEXIUM [Suspect]
     Indication: GASTROOESOPHAGEAL REFLUX DISEASE
     Dosage: SINCE 2010 OR 2011
     Route: 048
  3. NEXIUM [Suspect]
     Indication: HIATUS HERNIA
     Route: 048
  4. NEXIUM [Suspect]
     Indication: GASTROOESOPHAGEAL REFLUX DISEASE
     Route: 048
  5. NEXIUM [Suspect]
     Indication: HIATUS HERNIA
     Route: 048
     Dates: start: 201402
  6. NEXIUM [Suspect]
     Indication: GASTROOESOPHAGEAL REFLUX DISEASE
     Route: 048
     Dates: start: 201402
  7. PRILOSEC [Suspect]
     Route: 048
  8. METOPROLOL TARTRATE [Suspect]
     Dosage: 50 MG 1 AND HALF PIL BID
     Route: 048
     Dates: start: 2010
  9. METOPROLOL [Concomitant]
  10. ZEMPLAR [Concomitant]
     Indication: RENAL DISORDER
     Route: 048
     Dates: start: 2011
  11. HYDROCODONE [Concomitant]
     Indication: PAIN
     Route: 048
  12. INSULIN PEN [Concomitant]
     Dosage: 8 UNITS DAILY
     Route: 058
     Dates: start: 1999
  13. NIFEDIPINE [Concomitant]
     Indication: CARDIAC DISORDER
     Route: 048
     Dates: start: 2010
  14. SIMVASTATIN [Concomitant]
     Indication: BLOOD CHOLESTEROL
     Route: 048
     Dates: start: 2010
  15. KLOR KON [Concomitant]
     Indication: BLOOD POTASSIUM
     Route: 048
  16. DONEPEZIL [Concomitant]
     Indication: MEMORY IMPAIRMENT
     Route: 048
     Dates: start: 2013
  17. BABY ASPIRIN [Concomitant]
     Dosage: DAILY
     Route: 048
  18. MELLEZINE [Concomitant]
     Indication: RENAL DISORDER
     Route: 048
  19. CALTRATE OTC [Concomitant]
     Dosage: ONE DAILY
     Route: 048
     Dates: start: 201305
  20. VITAMIN D [Concomitant]
     Route: 048
     Dates: start: 2009
  21. LACTULOSE [Concomitant]
     Indication: DIVERTICULITIS
     Dosage: 2 TABS DAILY
     Route: 048
     Dates: start: 2010

REACTIONS (18)
  - Thrombosis [Unknown]
  - Haematemesis [Unknown]
  - Cerebrovascular accident [Unknown]
  - Coronary artery occlusion [Unknown]
  - Lower limb fracture [Unknown]
  - Accident [Unknown]
  - Lymphadenopathy [Unknown]
  - Diverticulitis [Unknown]
  - Chest pain [Unknown]
  - Oesophageal disorder [Unknown]
  - Arthralgia [Unknown]
  - Eructation [Recovered/Resolved]
  - Pain [Recovered/Resolved]
  - Arthritis [Not Recovered/Not Resolved]
  - Confusional state [Not Recovered/Not Resolved]
  - Off label use [Unknown]
  - Drug ineffective [Unknown]
  - Drug dose omission [Unknown]
